FAERS Safety Report 16739683 (Version 2)
Quarter: 2019Q4

REPORT INFORMATION
  Report Type: Spontaneous
  Country: CH (occurrence: CH)
  Receive Date: 20190826
  Receipt Date: 20191015
  Transmission Date: 20200122
  Serious: Yes (Other)
  Sender: FDA-Public Use
  Company Number: CH-ASTELLAS-2019US033651

PATIENT
  Age: 58 Year
  Sex: Male

DRUGS (2)
  1. IRFEN [Concomitant]
     Active Substance: IBUPROFEN
     Indication: PAIN
     Dosage: 400 (UNITS UNSPECIFIED), AS NEEDED
     Route: 048
  2. CRESEMBA [Suspect]
     Active Substance: ISAVUCONAZONIUM SULFATE
     Indication: MEDICAL DEVICE SITE INFECTION
     Dosage: 200 UNSPECIFIED UNITS, ONCE DAILY
     Route: 048
     Dates: start: 20190603

REACTIONS (3)
  - Facial paresis [Recovered/Resolved]
  - Borrelia infection [Unknown]
  - Off label use [Unknown]

NARRATIVE: CASE EVENT DATE: 20190812
